FAERS Safety Report 5405958-X (Version None)
Quarter: 2007Q3

REPORT INFORMATION
  Report Type: 
  Country: None (occurrence: None)
  Receive Date: 20070802
  Receipt Date: 20070726
  Transmission Date: 20080115
  Serious: Yes (Hospitalization)
  Sender: FDA-Public Use
  Company Number: DIKYL-07-0651

PATIENT
  Age: 30 Year
  Sex: Female
  Weight: 132 kg

DRUGS (2)
  1. DIPRIVAN [Suspect]
     Indication: CYSTOPEXY
     Dosage: 180 MG, INTRAVENOUS; INTRAVENOUS
     Route: 042
     Dates: start: 20070725, end: 20070725
  2. DIPRIVAN [Suspect]
     Indication: CYSTOPEXY
     Dosage: 180 MG, INTRAVENOUS; INTRAVENOUS
     Route: 042
     Dates: start: 20070725, end: 20070725

REACTIONS (6)
  - AMNESIA [None]
  - GLASGOW COMA SCALE ABNORMAL [None]
  - MUSCLE RIGIDITY [None]
  - MYALGIA [None]
  - POSTURING [None]
  - UNRESPONSIVE TO STIMULI [None]
